FAERS Safety Report 10765341 (Version 1)
Quarter: 2015Q1

REPORT INFORMATION
  Report Type: Spontaneous
  Country: FR (occurrence: FR)
  Receive Date: 20150205
  Receipt Date: 20150205
  Transmission Date: 20150721
  Serious: Yes (Other)
  Sender: FDA-Public Use
  Company Number: FR-ROCHE-1532773

PATIENT
  Age: 58 Year
  Sex: Male

DRUGS (11)
  1. KEPPRA [Concomitant]
     Active Substance: LEVETIRACETAM
  2. BACTRIM [Concomitant]
     Active Substance: SULFAMETHOXAZOLE\TRIMETHOPRIM
     Route: 065
  3. SOLU-MEDROL [Concomitant]
     Active Substance: METHYLPREDNISOLONE SODIUM SUCCINATE
  4. OSMOTAN [Concomitant]
     Active Substance: DEXTROSE\POTASSIUM CHLORIDE\SODIUM CHLORIDE
  5. VIMPAT [Concomitant]
     Active Substance: LACOSAMIDE
  6. AVASTIN [Suspect]
     Active Substance: BEVACIZUMAB
     Indication: GLIOBLASTOMA
     Route: 041
     Dates: start: 20141114, end: 20141229
  7. PERFALGAN [Concomitant]
     Active Substance: ACETAMINOPHEN
  8. CALCIUM FOLINATE [Concomitant]
     Active Substance: LEUCOVORIN CALCIUM
  9. FRAGMINE [Concomitant]
     Active Substance: DALTEPARIN SODIUM
  10. NORMACOL [Concomitant]
     Active Substance: KARAYA GUM
  11. SCOPODERM [Concomitant]
     Active Substance: SCOPOLAMINE

REACTIONS (1)
  - Hepatitis [Unknown]

NARRATIVE: CASE EVENT DATE: 20141216
